FAERS Safety Report 8209030-5 (Version None)
Quarter: 2012Q1

REPORT INFORMATION
  Report Type: 
  Country: None (occurrence: None)
  Receive Date: 20120314
  Receipt Date: 20120306
  Transmission Date: 20120608
  Serious: Yes (Death, Other)
  Sender: FDA-Public Use
  Company Number: CH-ACTELION-A-CH2011-56664

PATIENT
  Sex: Male
  Weight: 82 kg

DRUGS (10)
  1. ALDACTONE [Concomitant]
  2. SPIRIVA [Concomitant]
  3. EZETIMIBE [Concomitant]
  4. CAPTOPRIL [Concomitant]
  5. TRACLEER [Suspect]
     Indication: PULMONARY HYPERTENSION
     Dosage: 62.5 MG, BID
     Route: 048
     Dates: start: 20110625, end: 20111107
  6. ATORVASTATIN CALCIUM [Concomitant]
  7. ATENOLOL [Concomitant]
  8. PLAVEX [Concomitant]
  9. ONBREZ [Concomitant]
  10. LASIX [Concomitant]

REACTIONS (5)
  - WEIGHT INCREASED [None]
  - CARDIOMYOPATHY [None]
  - OEDEMA PERIPHERAL [None]
  - VENOOCCLUSIVE DISEASE [None]
  - FLUID RETENTION [None]
